FAERS Safety Report 19153396 (Version 1)
Quarter: 2021Q2

REPORT INFORMATION
  Report Type: Spontaneous
  Country: US (occurrence: US)
  Receive Date: 20210419
  Receipt Date: 20210419
  Transmission Date: 20210717
  Serious: Yes (Life-Threatening, Hospitalization, Other)
  Sender: FDA-Public Use
  Company Number: US-LUPIN PHARMACEUTICALS INC.-2021-04861

PATIENT
  Age: 12 Year
  Sex: Female

DRUGS (1)
  1. AMLODIPINE [Suspect]
     Active Substance: AMLODIPINE BESYLATE
     Indication: PRODUCT USED FOR UNKNOWN INDICATION
     Dosage: 16 DOSAGE FORM (PILLS)
     Route: 065

REACTIONS (13)
  - Suicide attempt [Unknown]
  - Tachycardia [Recovered/Resolved]
  - Syncope [Recovered/Resolved]
  - Hyperglycaemia [Recovered/Resolved]
  - Acidosis [Recovered/Resolved]
  - Nausea [Recovered/Resolved]
  - Hypotension [Recovered/Resolved]
  - Acute kidney injury [Recovered/Resolved]
  - Shock [Recovered/Resolved]
  - Abdominal tenderness [Recovered/Resolved]
  - Intentional overdose [Unknown]
  - Abdominal pain [Recovered/Resolved]
  - Bone pain [Recovered/Resolved]
